FAERS Safety Report 18794733 (Version 2)
Quarter: 2021Q1

REPORT INFORMATION
  Report Type: Spontaneous
  Country: JP (occurrence: JP)
  Receive Date: 20210127
  Receipt Date: 20210215
  Transmission Date: 20210419
  Serious: Yes (Other)
  Sender: FDA-Public Use
  Company Number: JP-ROCHE-2758368

PATIENT
  Age: 41 Year
  Sex: Male
  Weight: 70 kg

DRUGS (18)
  1. GASTER [Concomitant]
     Active Substance: FAMOTIDINE
     Route: 048
  2. ACETAMINOPHEN. [Concomitant]
     Active Substance: ACETAMINOPHEN
     Dosage: AT THE TIME OF PAIN
     Route: 048
  3. URSODEOXYCHOLIC ACID [Concomitant]
     Active Substance: URSODIOL
     Route: 048
  4. FEBURIC [Concomitant]
     Active Substance: FEBUXOSTAT
     Route: 048
  5. GLYCYRON [Concomitant]
     Route: 048
  6. DEXAMETHASONE. [Suspect]
     Active Substance: DEXAMETHASONE
     Indication: PRODUCT USED FOR UNKNOWN INDICATION
     Route: 048
  7. CALBLOCK [Suspect]
     Active Substance: AZELNIDIPINE
     Indication: PRODUCT USED FOR UNKNOWN INDICATION
     Route: 048
  8. CANAGLU [Concomitant]
     Active Substance: CANAGLIFLOZIN
     Route: 048
  9. ACTEMRA [Suspect]
     Active Substance: TOCILIZUMAB
     Indication: TAKAYASU^S ARTERITIS
     Route: 058
     Dates: start: 20170916
  10. ETIZOLAM [Concomitant]
     Active Substance: ETIZOLAM
     Route: 048
  11. MEVALOTIN [Concomitant]
     Active Substance: PRAVASTATIN SODIUM
     Route: 048
  12. DUAC [Concomitant]
     Active Substance: BENZOYL PEROXIDE\CLINDAMYCIN PHOSPHATE
     Dosage: AT THE TIME OF NEED, APPLYING TO THE AFFECTED AREA
     Route: 061
  13. PLAVIX [Concomitant]
     Active Substance: CLOPIDOGREL BISULFATE
     Route: 048
  14. ARTIST [Concomitant]
     Active Substance: CARVEDILOL
     Route: 048
  15. DECADRON [Concomitant]
     Active Substance: DEXAMETHASONE
     Route: 048
  16. LOXONIN [Concomitant]
     Active Substance: LOXOPROFEN SODIUM
     Route: 061
  17. ROZEREM [Concomitant]
     Active Substance: RAMELTEON
     Route: 048
  18. MINOCYCLINE HYDROCHLORIDE. [Concomitant]
     Active Substance: MINOCYCLINE HYDROCHLORIDE
     Route: 048

REACTIONS (1)
  - COVID-19 [Recovering/Resolving]

NARRATIVE: CASE EVENT DATE: 20201220
